FAERS Safety Report 16799225 (Version 2)
Quarter: 2019Q4

REPORT INFORMATION
  Report Type: Spontaneous
  Country: US (occurrence: US)
  Receive Date: 20190912
  Receipt Date: 20191111
  Transmission Date: 20200122
  Serious: No
  Sender: FDA-Public Use
  Company Number: US-PFIZER INC-2015409826

PATIENT
  Age: 45 Year
  Sex: Female
  Weight: 90.7 kg

DRUGS (4)
  1. LYRICA [Suspect]
     Active Substance: PREGABALIN
     Dosage: 375 MG, DAILY (2 AT 75 MG AM, 3 AT 75 MG NIGHT)
     Dates: start: 2014
  2. TYLENOL [Concomitant]
     Active Substance: ACETAMINOPHEN
     Dosage: UNK
  3. LYRICA [Suspect]
     Active Substance: PREGABALIN
     Indication: HEREDITARY MOTOR AND SENSORY NEUROPATHY
     Dosage: 75 MG, 3X/DAY
     Route: 048
  4. LYRICA [Suspect]
     Active Substance: PREGABALIN
     Dosage: 175 MG, 3X/DAY

REACTIONS (7)
  - Muscle disorder [Unknown]
  - Malaise [Unknown]
  - Nervous system disorder [Unknown]
  - Product use in unapproved indication [Unknown]
  - Drug withdrawal syndrome [Recovered/Resolved]
  - Off label use [Unknown]
  - Insomnia [Unknown]

NARRATIVE: CASE EVENT DATE: 2014
